FAERS Safety Report 18979115 (Version 1)
Quarter: 2021Q1

REPORT INFORMATION
  Report Type: Spontaneous
  Country: TR (occurrence: TR)
  Receive Date: 20210308
  Receipt Date: 20210308
  Transmission Date: 20210420
  Serious: Yes (Congenital Anomaly)
  Sender: FDA-Public Use
  Company Number: TR-CISBIO-201400016

PATIENT
  Age: 15 Day
  Sex: Male
  Weight: 4.72 kg

DRUGS (2)
  1. METHYMETAZOLE [Concomitant]
     Indication: HYPERTHYROIDISM
     Route: 064
  2. SODIUM IODIDE I 131 [Suspect]
     Active Substance: SODIUM IODIDE I-131
     Indication: HYPERTHYROIDISM
     Dosage: NUMBER OF SEPARATE DOSAGES: 1
     Route: 064

REACTIONS (2)
  - Congenital hypothyroidism [Unknown]
  - Foetal exposure during pregnancy [Recovered/Resolved]
